FAERS Safety Report 10676043 (Version 1)
Quarter: 2014Q4

REPORT INFORMATION
  Report Type: Report from Study
  Country: AR (occurrence: AR)
  Receive Date: 20141225
  Receipt Date: 20141225
  Transmission Date: 20150529
  Serious: Yes (Other)
  Sender: FDA-Public Use
  Company Number: PHHY2014AR164178

PATIENT
  Age: 65 Year
  Sex: Female

DRUGS (2)
  1. ONBREZ [Suspect]
     Active Substance: INDACATEROL
     Indication: CHRONIC OBSTRUCTIVE PULMONARY DISEASE
     Dosage: 150 UG, QD
     Route: 065
     Dates: start: 20130101, end: 20130120
  2. ONBREZ [Suspect]
     Active Substance: INDACATEROL
     Dosage: 150 UG, QD
     Route: 065
     Dates: start: 20141015

REACTIONS (5)
  - Movement disorder [Recovering/Resolving]
  - Arthropathy [Recovering/Resolving]
  - Abasia [Recovering/Resolving]
  - Osteoporosis [Recovering/Resolving]
  - Osteoarthritis [Recovering/Resolving]

NARRATIVE: CASE EVENT DATE: 20141031
